FAERS Safety Report 16396795 (Version 1)
Quarter: 2019Q2

REPORT INFORMATION
  Report Type: Spontaneous
  Country: DE (occurrence: DE)
  Receive Date: 20190606
  Receipt Date: 20190606
  Transmission Date: 20190711
  Serious: Yes (Other)
  Sender: FDA-Public Use
  Company Number: DE-BAXTER-2019BAX010931

PATIENT
  Age: 60 Year
  Sex: Male

DRUGS (13)
  1. DOXORUBICIN [Suspect]
     Active Substance: DOXORUBICIN
     Indication: MANTLE CELL LYMPHOMA STAGE IV
     Dosage: MAXI-CHOP
     Route: 065
     Dates: start: 2016
  2. ADALIMUMAB [Concomitant]
     Active Substance: ADALIMUMAB
     Indication: PSORIATIC ARTHROPATHY
     Route: 065
     Dates: start: 2012
  3. PREDNISOLONE. [Suspect]
     Active Substance: PREDNISOLONE
     Indication: MANTLE CELL LYMPHOMA STAGE IV
     Dosage: MAXI-CHOP
     Route: 065
     Dates: start: 2016
  4. RITUXIMAB. [Suspect]
     Active Substance: RITUXIMAB
     Indication: MANTLE CELL LYMPHOMA STAGE IV
     Dosage: 3 CYCLICAL
     Route: 065
     Dates: start: 2016
  5. ETOPOSIDE. [Suspect]
     Active Substance: ETOPOSIDE
     Indication: MANTLE CELL LYMPHOMA STAGE IV
     Dosage: HIGH-DOSE BEAM
     Route: 065
     Dates: start: 2016
  6. VINCRISTINE [Suspect]
     Active Substance: VINCRISTINE
     Indication: MANTLE CELL LYMPHOMA STAGE IV
     Dosage: MAXI-CHOP
     Route: 065
     Dates: start: 2016
  7. CYTARABINE. [Suspect]
     Active Substance: CYTARABINE
     Indication: MANTLE CELL LYMPHOMA STAGE IV
     Dosage: HIGH-DOSE,3 CYCLICAL
     Route: 065
     Dates: start: 2016
  8. CYTARABINE. [Suspect]
     Active Substance: CYTARABINE
     Dosage: HIGH-DOSE BEAM
     Route: 065
     Dates: start: 2016
  9. MELPHALAN. [Suspect]
     Active Substance: MELPHALAN
     Indication: MANTLE CELL LYMPHOMA STAGE IV
     Dosage: HIGH-DOSE BEAM
     Route: 065
     Dates: start: 2016
  10. CARMUSTINE. [Suspect]
     Active Substance: CARMUSTINE
     Indication: MANTLE CELL LYMPHOMA STAGE IV
     Route: 065
     Dates: start: 2016
  11. ADALIMUMAB [Concomitant]
     Active Substance: ADALIMUMAB
     Indication: PSORIASIS
  12. RITUXIMAB. [Suspect]
     Active Substance: RITUXIMAB
     Dosage: HIGH-DOSE CYTARABINE PLUS RITUXIMAB
     Route: 065
  13. ENDOXAN LYOPHILISAT [Suspect]
     Active Substance: CYCLOPHOSPHAMIDE
     Indication: MANTLE CELL LYMPHOMA STAGE IV
     Dosage: MAXI-CHOP
     Route: 065
     Dates: start: 2016

REACTIONS (7)
  - Lymphopenia [Unknown]
  - Aspergillus infection [Recovering/Resolving]
  - Herpes zoster [Recovered/Resolved]
  - Pancytopenia [Recovered/Resolved]
  - Bronchopulmonary aspergillosis [Recovering/Resolving]
  - Febrile neutropenia [Recovered/Resolved]
  - Retinal haemorrhage [Recovered/Resolved]

NARRATIVE: CASE EVENT DATE: 2016
